FAERS Safety Report 25159889 (Version 1)
Quarter: 2025Q2

REPORT INFORMATION
  Report Type: Spontaneous
  Country: US (occurrence: US)
  Receive Date: 20250404
  Receipt Date: 20250404
  Transmission Date: 20250716
  Serious: No
  Sender: PFIZER
  Company Number: US-PFIZER INC-PV202500040935

PATIENT
  Sex: Male

DRUGS (2)
  1. CRESEMBA [Suspect]
     Active Substance: ISAVUCONAZONIUM SULFATE
  2. METHOTREXATE SODIUM [Suspect]
     Active Substance: METHOTREXATE SODIUM

REACTIONS (1)
  - Hepatic enzyme increased [Recovering/Resolving]
